FAERS Safety Report 25640197 (Version 2)
Quarter: 2025Q4

REPORT INFORMATION
  Report Type: Spontaneous
  Country: EU (occurrence: EU)
  Receive Date: 20250804
  Receipt Date: 20251010
  Transmission Date: 20260118
  Serious: Yes (Hospitalization, Other)
  Sender: MERCK SHARP & DOHME LLC
  Company Number: EU-009507513-2314311

PATIENT
  Age: 74 Year
  Sex: Male

DRUGS (9)
  1. KEYTRUDA [Suspect]
     Active Substance: PEMBROLIZUMAB
     Indication: Metastatic malignant melanoma
     Dosage: 1ST CYCLE
     Route: 042
     Dates: start: 20240828, end: 20240828
  2. EZETIMIBE [Concomitant]
     Active Substance: EZETIMIBE
  3. ALLOPURINOL [Concomitant]
     Active Substance: ALLOPURINOL
  4. PANTOPRAZOLE [Concomitant]
     Active Substance: PANTOPRAZOLE
  5. FLUOXETINE [Concomitant]
     Active Substance: FLUOXETINE HYDROCHLORIDE
  6. ACALABRUTINIB [Concomitant]
     Active Substance: ACALABRUTINIB
  7. FOLIC ACID [Concomitant]
     Active Substance: FOLIC ACID
  8. IRBESARTAN [Concomitant]
     Active Substance: IRBESARTAN
  9. HYDROCHLOROTHIAZIDE [Concomitant]
     Active Substance: HYDROCHLOROTHIAZIDE

REACTIONS (28)
  - Blindness unilateral [Unknown]
  - Myositis [Unknown]
  - Nervous system disorder [Unknown]
  - Cardiovascular disorder [Unknown]
  - Ischaemic stroke [Unknown]
  - Myocarditis [Unknown]
  - Toxicity to various agents [Unknown]
  - Corneal perforation [Unknown]
  - Corneal abscess [Unknown]
  - Laryngeal stenosis [Unknown]
  - Diaphragmatic paralysis [Unknown]
  - Gait inability [Unknown]
  - Respiratory failure [Unknown]
  - Movement disorder [Unknown]
  - Medical induction of coma [Unknown]
  - Speech disorder [Unknown]
  - Dysstasia [Unknown]
  - Tracheal stenosis [Unknown]
  - Septic shock [Unknown]
  - Facial paralysis [Unknown]
  - Muscle necrosis [Unknown]
  - Cytomegalovirus infection reactivation [Unknown]
  - Immunosuppression [Unknown]
  - Vocal cord disorder [Unknown]
  - Chondritis [Unknown]
  - Malnutrition [Unknown]
  - Dysphagia [Unknown]
  - Ulcerative keratitis [Recovered/Resolved]

NARRATIVE: CASE EVENT DATE: 20240101
